FAERS Safety Report 7179162-1 (Version None)
Quarter: 2010Q4

REPORT INFORMATION
  Report Type: 
  Country: None (occurrence: None)
  Receive Date: 20101221
  Receipt Date: 20101213
  Transmission Date: 20110411
  Serious: Yes (Other)
  Sender: FDA-Public Use
  Company Number: DE-JNJFOC-20101203284

PATIENT
  Age: 38 Year
  Sex: Female

DRUGS (1)
  1. TOPIRAMATE [Suspect]
     Indication: MIGRAINE
     Route: 065

REACTIONS (6)
  - CHOROIDAL DETACHMENT [None]
  - CHOROIDAL EFFUSION [None]
  - CILIARY BODY DISORDER [None]
  - FLAT ANTERIOR CHAMBER OF EYE [None]
  - LENS DISLOCATION [None]
  - MYOPIA [None]
